FAERS Safety Report 18254296 (Version 2)
Quarter: 2020Q4

REPORT INFORMATION
  Report Type: Report from Study
  Country: None (occurrence: US)
  Receive Date: 20200911
  Receipt Date: 20201020
  Transmission Date: 20210113
  Serious: Yes (Hospitalization, Other)
  Sender: FDA-Public Use
  Company Number: US-ABBVIE-20K-163-3561293-00

PATIENT
  Sex: Male
  Weight: 88.53 kg

DRUGS (1)
  1. HUMIRA [Suspect]
     Active Substance: ADALIMUMAB
     Indication: RHEUMATOID ARTHRITIS
     Dosage: CITRATE FREE
     Route: 058
     Dates: start: 2016

REACTIONS (4)
  - Sciatica [Recovered/Resolved]
  - Pain in extremity [Recovered/Resolved]
  - Sinonasal obstruction [Unknown]
  - Brain neoplasm [Recovered/Resolved]

NARRATIVE: CASE EVENT DATE: 2020
